FAERS Safety Report 22866489 (Version 2)
Quarter: 2024Q1

REPORT INFORMATION
  Report Type: Spontaneous
  Country: US (occurrence: US)
  Receive Date: 20230825
  Receipt Date: 20240102
  Transmission Date: 20240409
  Serious: No
  Sender: FDA-Public Use
  Company Number: US-GSK-US2023AMR111354

PATIENT
  Sex: Female

DRUGS (4)
  1. FLUTICASONE PROPIONATE [Suspect]
     Active Substance: FLUTICASONE PROPIONATE
     Indication: Product used for unknown indication
     Dosage: 110 UG, 12G/120 METERED
     Dates: start: 2007
  2. FLUTICASONE PROPIONATE [Suspect]
     Active Substance: FLUTICASONE PROPIONATE
     Indication: Product used for unknown indication
     Dosage: UNK
     Dates: start: 2007
  3. FLUTICASONE PROPIONATE [Suspect]
     Active Substance: FLUTICASONE PROPIONATE
  4. OXYGEN [Concomitant]
     Active Substance: OXYGEN
     Indication: Sleep disorder
     Dosage: UNK

REACTIONS (3)
  - Product dose omission issue [Unknown]
  - Wrong technique in device usage process [Unknown]
  - Incorrect dose administered [Unknown]

NARRATIVE: CASE EVENT DATE: 20220101
